FAERS Safety Report 9486756 (Version 2)
Quarter: 2013Q4

REPORT INFORMATION
  Report Type: Spontaneous
  Country: US (occurrence: US)
  Receive Date: 20130829
  Receipt Date: 20131203
  Transmission Date: 20140711
  Serious: No
  Sender: FDA-Public Use
  Company Number: US-BRISTOL-MYERS SQUIBB COMPANY-19132232

PATIENT
  Age: 66 Year
  Sex: Female
  Weight: 92.51 kg

DRUGS (3)
  1. KOMBIGLYZE XR [Suspect]
     Indication: TYPE 2 DIABETES MELLITUS
     Dosage: 1DF=2.5/1000MG.?LOT#266104PA OR 206104PA
  2. GLIPIZIDE [Concomitant]
  3. METFORMIN [Concomitant]

REACTIONS (1)
  - Inappropriate schedule of drug administration [Unknown]
